FAERS Safety Report 8247054-2 (Version None)
Quarter: 2012Q1

REPORT INFORMATION
  Report Type: 
  Country: None (occurrence: None)
  Receive Date: 20120330
  Receipt Date: 20120323
  Transmission Date: 20120608
  Serious: Yes (Hospitalization)
  Sender: FDA-Public Use
  Company Number: HU-ROCHE-1038842

PATIENT
  Sex: Female
  Weight: 67 kg

DRUGS (5)
  1. PERTUZUMAB [Suspect]
     Indication: BREAST CANCER METASTATIC
     Dosage: LAST DOSE PRIOR TO SAE: 19/JAN/2012
     Route: 042
     Dates: start: 20111006
  2. HERCEPTIN [Suspect]
     Indication: BREAST CANCER METASTATIC
     Dosage: LAST DOSE PRIOR TO SAE: 19/JAN/2012
     Route: 042
     Dates: start: 20111006
  3. RAMIPRIL W/ HYDROCHLOROTHIAZIDE [Concomitant]
     Dates: start: 20080101
  4. AMLODIPINE [Concomitant]
     Dates: start: 20080101
  5. XELODA [Suspect]
     Indication: BREAST CANCER METASTATIC
     Dosage: LAST DOSE PRIOR TO SAE: 02/FEB/2012
     Route: 048
     Dates: start: 20111006

REACTIONS (1)
  - PULMONARY EMBOLISM [None]
